FAERS Safety Report 9051101 (Version 8)
Quarter: 2013Q2

REPORT INFORMATION
  Report Type: Report from Study
  Country: FI (occurrence: FI)
  Receive Date: 20130116
  Receipt Date: 20130603
  Transmission Date: 20140414
  Serious: Yes (Death, Hospitalization, Other)
  Sender: FDA-Public Use
  Company Number: FI-PFIZER INC-2012068121

PATIENT
  Age: 48 Year
  Sex: Female

DRUGS (6)
  1. CRIZOTINIB [Suspect]
     Indication: NON-SMALL CELL LUNG CANCER METASTATIC
     Dosage: 250 MG, 2X/DAY
     Dates: start: 20120305, end: 20121008
  2. CRIZOTINIB [Suspect]
     Dosage: 250 MG, 2X/DAY
     Dates: start: 20121012, end: 20121112
  3. CRIZOTINIB [Suspect]
     Dosage: 250 MG, 1X/DAY
     Dates: start: 20121116, end: 20121129
  4. CRIZOTINIB [Suspect]
     Dosage: 200 MG, 2X/DAY
     Dates: start: 20121203
  5. CARDACE [Concomitant]
  6. PULMICORT [Concomitant]

REACTIONS (21)
  - Neutropenia [Recovered/Resolved]
  - Neutropenia [Recovered/Resolved]
  - Neutropenia [Recovered/Resolved]
  - Neutropenia [Recovered/Resolved]
  - Neutropenia [Recovered/Resolved]
  - Renal failure [Not Recovered/Not Resolved]
  - Atrial fibrillation [Recovered/Resolved]
  - Disease progression [Fatal]
  - Non-small cell lung cancer [Fatal]
  - Myocardial infarction [Recovered/Resolved]
  - Diarrhoea [Recovered/Resolved]
  - Nausea [Not Recovered/Not Resolved]
  - Blood alkaline phosphatase increased [Not Recovered/Not Resolved]
  - Alanine aminotransferase increased [Recovered/Resolved]
  - Aspartate aminotransferase increased [Recovered/Resolved]
  - Dizziness [Recovered/Resolved]
  - Dysgeusia [Recovered/Resolved]
  - Anaemia [Not Recovered/Not Resolved]
  - Influenza [Recovered/Resolved]
  - C-reactive protein increased [Not Recovered/Not Resolved]
  - Viral infection [Recovered/Resolved]
